FAERS Safety Report 25464882 (Version 2)
Quarter: 2025Q3

REPORT INFORMATION
  Report Type: Spontaneous
  Country: US (occurrence: US)
  Receive Date: 20250622
  Receipt Date: 20250825
  Transmission Date: 20251021
  Serious: No
  Sender: SANOFI AVENTIS
  Company Number: US-SA-2025SA175807

PATIENT
  Age: 7 Year
  Sex: Female

DRUGS (1)
  1. DUPIXENT [Suspect]
     Active Substance: DUPILUMAB
     Indication: Dermatitis atopic
     Dosage: 300MG, Q4W
     Route: 058
     Dates: start: 202410

REACTIONS (4)
  - Eczema [Unknown]
  - Dermatitis atopic [Recovering/Resolving]
  - Perioral dermatitis [Recovering/Resolving]
  - Skin burning sensation [Unknown]

NARRATIVE: CASE EVENT DATE: 20250701
